FAERS Safety Report 13473513 (Version 1)
Quarter: 2017Q2

REPORT INFORMATION
  Report Type: Spontaneous
  Country: US (occurrence: US)
  Receive Date: 20170424
  Receipt Date: 20170424
  Transmission Date: 20170830
  Serious: No
  Sender: FDA-Public Use
  Company Number: US-BRACCO-014544

PATIENT
  Sex: Male

DRUGS (2)
  1. BARIUM SULPHATE [Suspect]
     Active Substance: BARIUM SULFATE
     Indication: COMPUTERISED TOMOGRAM
     Route: 048
     Dates: start: 20170329, end: 20170329
  2. CONTRAST MEDIA [Suspect]
     Active Substance: UNSPECIFIED INGREDIENT
     Indication: COMPUTERISED TOMOGRAM
     Route: 042
     Dates: start: 20170329, end: 20170329

REACTIONS (1)
  - Pain [Not Recovered/Not Resolved]

NARRATIVE: CASE EVENT DATE: 20170329
